FAERS Safety Report 9234695 (Version 3)
Quarter: 2017Q2

REPORT INFORMATION
  Report Type: Spontaneous
  Country: CA (occurrence: CA)
  Receive Date: 20130416
  Receipt Date: 20170523
  Transmission Date: 20170830
  Serious: Yes (Other)
  Sender: FDA-Public Use
  Company Number: CA-009507513-1304CAN006972

PATIENT
  Age: 72 Year
  Sex: Female
  Weight: 65.8 kg

DRUGS (5)
  1. CALCIUM (UNSPECIFIED) (+) VITAMIN D (UNSPECIFIED) [Concomitant]
     Active Substance: CALCIUM CARBONATE\VITAMIN D
     Dosage: UNK
     Route: 065
  2. SYNTHROID [Concomitant]
     Active Substance: LEVOTHYROXINE SODIUM
     Dosage: UNK
     Route: 065
  3. FOSAMAX [Suspect]
     Active Substance: ALENDRONATE SODIUM
     Indication: OSTEOPOROSIS POSTMENOPAUSAL
     Dosage: 70 MG, ONCE WEEKLY (QWK)
     Route: 048
  4. PROLIA [Suspect]
     Active Substance: DENOSUMAB
     Indication: OSTEOPOROSIS POSTMENOPAUSAL
     Dosage: 60 MG, 1 EVERY 6 MONTHS (Q6MO)
     Route: 058
     Dates: start: 201111
  5. ACTONEL [Suspect]
     Active Substance: RISEDRONATE SODIUM
     Indication: OSTEOPOROSIS POSTMENOPAUSAL
     Dosage: 35 MG, 1 EVERY 1 WEEK (QWK)
     Route: 048

REACTIONS (3)
  - Atypical femur fracture [Recovered/Resolved]
  - Pain in extremity [Not Recovered/Not Resolved]
  - Stress fracture [Recovered/Resolved]

NARRATIVE: CASE EVENT DATE: 201204
